FAERS Safety Report 21293336 (Version 1)
Quarter: 2022Q3

REPORT INFORMATION
  Report Type: Report from Study
  Country: US (occurrence: US)
  Receive Date: 20220905
  Receipt Date: 20220905
  Transmission Date: 20221026
  Serious: Yes (Other)
  Sender: FDA-Public Use
  Company Number: US-INSMED-2022-00617-USAA

PATIENT
  Sex: Male

DRUGS (2)
  1. ARIKAYCE [Suspect]
     Active Substance: AMIKACIN
     Indication: Mycobacterial infection
     Dosage: 590 MILLIGRAM, QD
     Route: 055
     Dates: start: 20220225
  2. SYMBICORT [Concomitant]
     Active Substance: BUDESONIDE\FORMOTEROL FUMARATE DIHYDRATE
     Indication: Product used for unknown indication
     Dosage: 2 PUFFS
     Route: 055

REACTIONS (17)
  - Lung disorder [Not Recovered/Not Resolved]
  - Pineal neoplasm [Unknown]
  - Lower respiratory tract congestion [Not Recovered/Not Resolved]
  - Heart rate increased [Unknown]
  - Secretion discharge [Unknown]
  - Hypertension [Unknown]
  - Hypotension [Unknown]
  - Sputum discoloured [Unknown]
  - Productive cough [Unknown]
  - Headache [Unknown]
  - Wheezing [Unknown]
  - Cough [Recovering/Resolving]
  - Diarrhoea [Not Recovered/Not Resolved]
  - Feeling abnormal [Unknown]
  - Fatigue [Unknown]
  - Haemoptysis [Not Recovered/Not Resolved]
  - Device issue [Unknown]

NARRATIVE: CASE EVENT DATE: 20220101
